FAERS Safety Report 8612319-9 (Version None)
Quarter: 2012Q3

REPORT INFORMATION
  Report Type: 
  Country: None (occurrence: None)
  Receive Date: 20120810
  Receipt Date: 20120810
  Transmission Date: 20120928
  Serious: Yes (Hospitalization)
  Sender: FDA-Public Use
  Company Number: None

PATIENT
  Age: 49 Year
  Sex: Female
  Weight: 89.3586 kg

DRUGS (1)
  1. WELLBUTRIN [Suspect]
     Indication: ATTENTION DEFICIT/HYPERACTIVITY DISORDER
     Dosage: 150MG 1 DAILY
     Dates: start: 20120728, end: 20120728

REACTIONS (3)
  - PALPITATIONS [None]
  - BLOOD PRESSURE INCREASED [None]
  - HEART RATE INCREASED [None]
